FAERS Safety Report 22651403 (Version 1)
Quarter: 2023Q2

REPORT INFORMATION
  Report Type: Spontaneous
  Country: US (occurrence: None)
  Receive Date: 20230627
  Receipt Date: 20230627
  Transmission Date: 20230722
  Serious: Yes (Hospitalization)
  Sender: FDA-Public Use
  Company Number: None

PATIENT
  Sex: Male

DRUGS (22)
  1. REPATHA [Suspect]
     Active Substance: EVOLOCUMAB
     Dosage: INJECT 140 MG UNDER THE SKIN (SUBCUTANEOUS INJECTION) EVERY 2 WEEKS
     Route: 058
     Dates: start: 20200723
  2. ACETAMINOPHEN [Concomitant]
     Active Substance: ACETAMINOPHEN
  3. ALLOPURINOL [Concomitant]
     Active Substance: ALLOPURINOL
  4. AMLODIPINE [Concomitant]
     Active Substance: AMLODIPINE BESYLATE
  5. ARTIFI TEARS [Concomitant]
  6. ARTIFICIAL SOL TEARS [Concomitant]
  7. ASPIRIN [Concomitant]
     Active Substance: ASPIRIN
  8. CARVEDILOL [Concomitant]
     Active Substance: CARVEDILOL
  9. CYCLOBENZAPRINE [Concomitant]
     Active Substance: CYCLOBENZAPRINE
  10. DOCUSATE SOD [Concomitant]
  11. ENALAPRIL [Concomitant]
  12. EZETIMIBE [Concomitant]
     Active Substance: EZETIMIBE
  13. GABAPENTIN [Concomitant]
     Active Substance: GABAPENTIN
  14. HYDROCHLOROTHIAZIDE [Concomitant]
     Active Substance: HYDROCHLOROTHIAZIDE
  15. ISOSORBIDE MONONITRATE [Concomitant]
     Active Substance: ISOSORBIDE MONONITRATE
  16. NOVOLIN [Concomitant]
  17. PREDNISONE [Concomitant]
     Active Substance: PREDNISONE
  18. TAMSULOSIN [Concomitant]
     Active Substance: TAMSULOSIN
  19. TRADJENTA [Concomitant]
     Active Substance: LINAGLIPTIN
  20. TRIAMCINOLON [Concomitant]
  21. VICTOZA [Concomitant]
     Active Substance: LIRAGLUTIDE
  22. VITAMIN D [Concomitant]
     Active Substance: VITAMIN D NOS

REACTIONS (2)
  - Diabetic bullosis [None]
  - Localised infection [None]
